FAERS Safety Report 8121339-2 (Version None)
Quarter: 2012Q1

REPORT INFORMATION
  Report Type: 
  Country: None (occurrence: None)
  Receive Date: 20120208
  Receipt Date: 20120202
  Transmission Date: 20120608
  Serious: Yes (Hospitalization)
  Sender: FDA-Public Use
  Company Number: FR-ASTELLAS-2011EU008686

PATIENT
  Sex: Female

DRUGS (10)
  1. PREVISCAN [Concomitant]
     Dosage: 1 DF, UNKNOWN/D
     Route: 048
  2. PROGRAF [Suspect]
     Indication: IMMUNOSUPPRESSION
     Dosage: UNK
     Route: 048
     Dates: start: 20110201, end: 20111005
  3. PREDNISOLONE [Concomitant]
     Dosage: 10 MG, UNKNOWN/D
     Route: 048
     Dates: start: 20110201
  4. PROGRAF [Interacting]
     Dosage: 0.5 MG, BID
     Route: 048
     Dates: start: 20111008
  5. VALGANCICLOVIR [Concomitant]
     Indication: ANTIVIRAL PROPHYLAXIS
     Dosage: 450 MG, UNKNOWN/D
     Route: 048
     Dates: start: 20110201
  6. MYCOPHENOLATE MOFETIL (CELLCEPT) [Concomitant]
     Indication: IMMUNOSUPPRESSION
     Dosage: UNK
     Route: 048
     Dates: start: 20110201
  7. VORICONAZOLE [Interacting]
     Indication: PROPHYLAXIS AGAINST TRANSPLANT REJECTION
     Dosage: 200 MG, BID
     Route: 048
     Dates: start: 20110201
  8. RABEPRAZOLE SODIUM [Concomitant]
     Dosage: 20 MG, UNKNOWN/D
     Route: 048
  9. CALCIUM CARBONATE [Concomitant]
     Dosage: 1 DF, UNKNOWN/D
     Route: 048
  10. PRIMPERAN TAB [Concomitant]
     Dosage: UNK
     Route: 048

REACTIONS (8)
  - DRUG INTERACTION [None]
  - ASTHENIA [None]
  - OVERDOSE [None]
  - DIARRHOEA [None]
  - DRUG LEVEL INCREASED [None]
  - RENAL FAILURE ACUTE [None]
  - DECREASED APPETITE [None]
  - VERTIGO [None]
